FAERS Safety Report 9562565 (Version 1)
Quarter: 2013Q3

REPORT INFORMATION
  Report Type: Spontaneous
  Country: US (occurrence: None)
  Receive Date: 20130926
  Receipt Date: 20130926
  Transmission Date: 20140515
  Serious: Yes (Other)
  Sender: FDA-Public Use
  Company Number: None

PATIENT
  Age: 57 Year
  Sex: Male

DRUGS (2)
  1. RIBAVIRIN [Suspect]
     Indication: CHRONIC HEPATITIS C
     Dosage: AM
     Route: 048
     Dates: start: 20130221
  2. RIBAVIRIN [Suspect]
     Dosage: AM
     Route: 048
     Dates: start: 20130221

REACTIONS (5)
  - Fatigue [None]
  - Depression [None]
  - Amnesia [None]
  - Erythema [None]
  - Skin exfoliation [None]
